FAERS Safety Report 7307317-1 (Version None)
Quarter: 2011Q1

REPORT INFORMATION
  Report Type: 
  Country: None (occurrence: None)
  Receive Date: 20110223
  Receipt Date: 20110215
  Transmission Date: 20110831
  Serious: Yes (Other)
  Sender: FDA-Public Use
  Company Number: US-US-EMD SERONO, INC.-430001M10USA

PATIENT
  Sex: Female
  Weight: 57 kg

DRUGS (1)
  1. NOVANTRONE [Suspect]
     Indication: MULTIPLE SCLEROSIS
     Dates: start: 20091012, end: 20100122

REACTIONS (2)
  - NAUSEA [None]
  - ARRHYTHMIA [None]
